FAERS Safety Report 6593160-8 (Version None)
Quarter: 2010Q1

REPORT INFORMATION
  Report Type: 
  Country: None (occurrence: None)
  Receive Date: 20100222
  Receipt Date: 20100211
  Transmission Date: 20100710
  Serious: Yes (Other)
  Sender: FDA-Public Use
  Company Number: PHEH2008US06153

PATIENT
  Sex: Female

DRUGS (21)
  1. ESTRADERM [Suspect]
  2. RIFAMPIN [Concomitant]
     Dosage: 600 MG, UNK
  3. ZITHROMAX [Concomitant]
     Dosage: 250 MG, UNK
  4. BIAXIN [Concomitant]
     Dosage: 250 MG, BID
  5. MYAMBUTOL [Concomitant]
     Dosage: 400 MG, QID
  6. COZAAR [Concomitant]
     Dosage: 50 MG, UNK
  7. PROVERA [Concomitant]
  8. PREMARIN [Concomitant]
  9. TOPICAL EYE DROP [Concomitant]
  10. CORTICOSTEROIDS [Concomitant]
  11. FOSAMAX [Concomitant]
     Dosage: UNK
  12. BETACAROTENE [Concomitant]
  13. ATENOLOL [Concomitant]
  14. VERAPAMIL [Concomitant]
  15. DEMEROL [Concomitant]
  16. VERSED [Concomitant]
  17. TENORMIN [Concomitant]
  18. FAMVIR                                  /NET/ [Concomitant]
  19. AUGMENTIN BID [Concomitant]
  20. VASOTEC [Concomitant]
  21. PREDNISONE [Concomitant]

REACTIONS (41)
  - ANAEMIA [None]
  - ANXIETY [None]
  - BLINDNESS [None]
  - BREAST CANCER [None]
  - BREAST LUMP REMOVAL [None]
  - CATARACT OPERATION [None]
  - CLUSTER HEADACHE [None]
  - COLOSTOMY [None]
  - COLOSTOMY CLOSURE [None]
  - COUGH [None]
  - DERMATITIS CONTACT [None]
  - DISABILITY [None]
  - DIVERTICULAR PERFORATION [None]
  - DIVERTICULITIS [None]
  - DIVERTICULUM [None]
  - EMOTIONAL DISORDER [None]
  - FATIGUE [None]
  - GASTROINTESTINAL HAEMORRHAGE [None]
  - HEPATIC CYST [None]
  - HERPES SIMPLEX OPHTHALMIC [None]
  - HYPOKALAEMIA [None]
  - HYPOMAGNESAEMIA [None]
  - KYPHOSIS [None]
  - LAPAROTOMY [None]
  - LEFT VENTRICULAR DYSFUNCTION [None]
  - LUNG DISORDER [None]
  - LYMPHADENECTOMY [None]
  - MASTOID OPERATION [None]
  - OSTEOPENIA [None]
  - PAIN [None]
  - POLYMYALGIA RHEUMATICA [None]
  - RADIOTHERAPY [None]
  - RASH PRURITIC [None]
  - RECTAL HAEMORRHAGE [None]
  - SCAR [None]
  - SCOLIOSIS [None]
  - SINUSITIS [None]
  - SUPRAVENTRICULAR TACHYCARDIA [None]
  - SYNCOPE [None]
  - TONSILLECTOMY [None]
  - URINE ODOUR ABNORMAL [None]
